FAERS Safety Report 8836099 (Version 1)
Quarter: 2012Q4

REPORT INFORMATION
  Report Type: 
  Country: CA (occurrence: CA)
  Receive Date: 20121011
  Receipt Date: 20121011
  Transmission Date: 20130627
  Serious: Yes (Death)
  Sender: FDA-Public Use
  Company Number: CA-NAPPMUNDI-DEU-2012-0009546

PATIENT

DRUGS (3)
  1. MORPHINE SULFATE INJECTION [Suspect]
     Indication: ANALGESIC THERAPY
     Dosage: 10 mg, see text
     Route: 058
  2. MORPHINE SULFATE INJECTION [Suspect]
     Dosage: 1 mg, see text
     Route: 058
  3. MORPHINE SULFATE INJECTION [Suspect]
     Dosage: 2 mg, see text
     Route: 058

REACTIONS (2)
  - Incorrect dose administered [Fatal]
  - Cardiac failure congestive [Fatal]
